FAERS Safety Report 17440047 (Version 1)
Quarter: 2020Q1

REPORT INFORMATION
  Report Type: Spontaneous
  Country: US (occurrence: US)
  Receive Date: 20200220
  Receipt Date: 20200220
  Transmission Date: 20200409
  Serious: No
  Sender: FDA-Public Use
  Company Number: US-PFIZER INC-2020072589

PATIENT
  Sex: Male

DRUGS (1)
  1. TESTOSTERONE CIPIONATE [Suspect]
     Active Substance: TESTOSTERONE
     Indication: BLOOD TESTOSTERONE DECREASED
     Dosage: UNK

REACTIONS (4)
  - Poor quality product administered [Not Recovered/Not Resolved]
  - Product deposit [Not Recovered/Not Resolved]
  - Fatigue [Unknown]
  - Product colour issue [Not Recovered/Not Resolved]
